FAERS Safety Report 18447620 (Version 1)
Quarter: 2020Q4

REPORT INFORMATION
  Report Type: Spontaneous
  Country: US (occurrence: US)
  Receive Date: 20201030
  Receipt Date: 20201030
  Transmission Date: 20210114
  Serious: No
  Sender: FDA-Public Use
  Company Number: US-BAUSCH-BL-2020-029313

PATIENT
  Sex: Female

DRUGS (1)
  1. DIHYDROERGOTAMINE MESYLATE NASAL SPRAY [Suspect]
     Active Substance: DIHYDROERGOTAMINE MESYLATE
     Indication: MIGRAINE
     Dosage: ONE SPRAY IN EACH NOSTRIL THEN FIFTEEN MINUTES LATER ONE SPRAY IN EACH NOSTRIL AGAIN AS NEEDED
     Route: 045
     Dates: start: 20201003

REACTIONS (1)
  - Therapeutic product effect incomplete [Unknown]

NARRATIVE: CASE EVENT DATE: 202010
